FAERS Safety Report 6666891-9 (Version None)
Quarter: 2010Q2

REPORT INFORMATION
  Report Type: 
  Country: None (occurrence: None)
  Receive Date: 20100402
  Receipt Date: 20100402
  Transmission Date: 20101027
  Serious: Yes (Hospitalization)
  Sender: FDA-Public Use
  Company Number: None

PATIENT
  Sex: Female
  Weight: 72.72 kg

DRUGS (2)
  1. CISPLATIN [Suspect]
     Dosage: .5 MG
  2. TOPOTECAN [Suspect]
     Dosage: .5 MG

REACTIONS (4)
  - ANAEMIA [None]
  - CULTURE URINE POSITIVE [None]
  - ENTEROCOCCAL INFECTION [None]
  - PYREXIA [None]
